FAERS Safety Report 16412282 (Version 1)
Quarter: 2019Q2

REPORT INFORMATION
  Report Type: Spontaneous
  Country: IT (occurrence: IT)
  Receive Date: 20190610
  Receipt Date: 20190610
  Transmission Date: 20190711
  Serious: Yes (Hospitalization, Other)
  Sender: FDA-Public Use
  Company Number: PHHY2019IT128149

PATIENT
  Age: 62 Year
  Sex: Male

DRUGS (3)
  1. LEVODOPA+CARBIDOPA [Suspect]
     Active Substance: CARBIDOPA\LEVODOPA
     Indication: PARKINSON^S DISEASE
     Dosage: 0.5 DF, STRENGTH: 250/25 MG
     Route: 048
  2. ENTACAPONE. [Suspect]
     Active Substance: ENTACAPONE
     Dosage: 200 MG, Q3H
     Route: 048
  3. ENTACAPONE. [Suspect]
     Active Substance: ENTACAPONE
     Indication: PARKINSON^S DISEASE
     Dosage: 200 MG, Q4H
     Route: 048

REACTIONS (1)
  - Parkinsonism hyperpyrexia syndrome [Recovered/Resolved]
